FAERS Safety Report 4554753-2 (Version None)
Quarter: 2005Q1

REPORT INFORMATION
  Report Type: 
  Country: None (occurrence: None)
  Receive Date: 20050118
  Receipt Date: 20050117
  Transmission Date: 20050727
  Serious: Yes (Hospitalization)
  Sender: FDA-Public Use
  Company Number: FRPFM-E-20040143-V001

PATIENT
  Age: 40 Year
  Sex: Female

DRUGS (3)
  1. NAVELBINE [Suspect]
     Dosage: 25MG SEE DOSAGE TEXT
     Route: 042
     Dates: start: 20041121
  2. ZOMETA [Suspect]
     Dosage: 4MG SEE DOSAGE TEXT
     Route: 042
  3. TAXOL [Concomitant]
     Dosage: 110MG SEE DOSAGE TEXT
     Route: 042

REACTIONS (3)
  - BRADYCARDIA [None]
  - HYPOTENSION [None]
  - MALAISE [None]
